FAERS Safety Report 5413149-1 (Version None)
Quarter: 2007Q3

REPORT INFORMATION
  Report Type: 
  Country: None (occurrence: None)
  Receive Date: 20070810
  Receipt Date: 20070803
  Transmission Date: 20080115
  Serious: Yes (Other)
  Sender: FDA-Public Use
  Company Number: 158033USA

PATIENT
  Age: 60 Year
  Sex: Female

DRUGS (6)
  1. COPAXONE [Suspect]
     Indication: MULTIPLE SCLEROSIS
     Dosage: 20 MG (20 MG, 1 IN 1 D), SUBCUTANEOUS
     Route: 058
     Dates: start: 20000101, end: 20070504
  2. METOPROLOL SUCCINATE [Concomitant]
  3. DYAZIDE [Concomitant]
  4. LOSARTAN POTASSIUM [Concomitant]
  5. MODAFINIL [Concomitant]
  6. VITAMIN B [Concomitant]

REACTIONS (3)
  - B-CELL LYMPHOMA [None]
  - RASH PRURITIC [None]
  - URTICARIA [None]
